FAERS Safety Report 8311816-3 (Version None)
Quarter: 2012Q2

REPORT INFORMATION
  Report Type: 
  Country: None (occurrence: None)
  Receive Date: 20120425
  Receipt Date: 20120420
  Transmission Date: 20120825
  Serious: Yes (Other)
  Sender: FDA-Public Use
  Company Number: US-PFIZER INC-2012061878

PATIENT
  Sex: Female
  Weight: 68 kg

DRUGS (12)
  1. PROMETHAZINE [Concomitant]
     Indication: NAUSEA
     Dosage: 25 MG, AS NEEDED
  2. FROVA [Concomitant]
     Indication: MIGRAINE
     Dosage: 2.5 MG, DAILY
  3. CHANTIX [Suspect]
     Indication: SMOKING CESSATION THERAPY
     Dosage: 0.5 MG, DAILY
     Route: 048
     Dates: start: 20090301
  4. OXYCODONE [Concomitant]
     Indication: PAIN
     Dosage: 30 MG, 3X/DAY
  5. CELEBREX [Concomitant]
     Indication: ARTHRITIS
     Dosage: 200 MG, DAILY
  6. LEXAPRO [Concomitant]
     Indication: DEPRESSION
     Dosage: 20 MG, DAILY
  7. OXYCONTIN [Concomitant]
     Indication: PAIN
     Dosage: 30 MG, 2X/DAY
  8. KLONOPIN [Concomitant]
     Indication: PAIN
  9. REQUIP [Concomitant]
     Indication: RESTLESS LEGS SYNDROME
     Dosage: 50 MG, DAILY
  10. LEXAPRO [Concomitant]
     Dosage: UNK
  11. TOPROL-XL [Concomitant]
     Indication: HYPERTENSION
     Dosage: 50 MG, DAILY
  12. KLONOPIN [Concomitant]
     Indication: ANXIETY
     Dosage: 1.5MG IN MORNING AND 3.5MG AT NIGHT

REACTIONS (3)
  - MACROCYTOSIS [None]
  - ASTHMA [None]
  - POLYCYTHAEMIA [None]
